FAERS Safety Report 10561651 (Version 2)
Quarter: 2016Q3

REPORT INFORMATION
  Report Type: Report from Study
  Country: VE (occurrence: VE)
  Receive Date: 20141103
  Receipt Date: 20160819
  Transmission Date: 20161109
  Serious: Yes (Death)
  Sender: FDA-Public Use
  Company Number: VE-ABBVIE-14K-178-1303000-00

PATIENT
  Sex: Female

DRUGS (2)
  1. HUMIRA [Suspect]
     Active Substance: ADALIMUMAB
     Indication: RHEUMATOID ARTHRITIS
     Route: 058
     Dates: start: 2014, end: 20140522
  2. METHOTREXATE. [Concomitant]
     Active Substance: METHOTREXATE
     Indication: HYPERTENSION

REACTIONS (1)
  - Infarction [Fatal]
